FAERS Safety Report 4824622-9 (Version None)
Quarter: 2005Q4

REPORT INFORMATION
  Report Type: 
  Country: None (occurrence: None)
  Receive Date: 20051108
  Receipt Date: 20051027
  Transmission Date: 20060501
  Serious: Yes (Death)
  Sender: FDA-Public Use
  Company Number: JP_051007838

PATIENT
  Age: 70 Year
  Sex: Male

DRUGS (5)
  1. ZYPREXA [Suspect]
     Indication: DELIRIUM
     Dosage: 7.5 MG DAY
     Dates: start: 20050920
  2. THEO-DUR [Concomitant]
  3. NORFLOXACIN [Concomitant]
  4. MINOCYCLINE HCL [Concomitant]
  5. TIENAM [Concomitant]

REACTIONS (2)
  - CARDIO-RESPIRATORY ARREST [None]
  - INSOMNIA [None]
